FAERS Safety Report 19272904 (Version 3)
Quarter: 2021Q2

REPORT INFORMATION
  Report Type: Spontaneous
  Country: JP (occurrence: JP)
  Receive Date: 20210518
  Receipt Date: 20210621
  Transmission Date: 20210717
  Serious: Yes (Death, Hospitalization, Other)
  Sender: FDA-Public Use
  Company Number: JP-AMGEN-JPNSP2021074441

PATIENT
  Age: 85 Year
  Sex: Female

DRUGS (14)
  1. PANTOSIN [Concomitant]
     Active Substance: PANTETHINE
     Dosage: 200 MILLIGRAM, TID
     Dates: start: 20210127
  2. MAGMITT [Concomitant]
     Active Substance: MAGNESIUM OXIDE
     Dosage: 330 MILLIGRAM, TID
     Dates: start: 20200405
  3. CALONAL [Concomitant]
     Active Substance: ACETAMINOPHEN
     Dosage: 50 MILLIGRAM, BID
     Dates: start: 20201209
  4. EVENITY [Suspect]
     Active Substance: ROMOSOZUMAB-AQQG
     Indication: OSTEOPOROSIS
     Dosage: 105 MILLIGRAM
     Route: 058
     Dates: start: 20201028, end: 20210328
  5. TANATRIL [Concomitant]
     Active Substance: IMIDAPRIL
     Dosage: 5 MILLIGRAM, QD
     Dates: start: 20210113
  6. SERMION [NICERGOLINE] [Concomitant]
     Dosage: 5 MILLIGRAM, TID
     Dates: start: 20200408
  7. MOHRUS [Concomitant]
     Active Substance: KETOPROFEN
     Dosage: 40 MILLIGRAM, QD
     Dates: start: 20200408
  8. BETANIS [Concomitant]
     Active Substance: MIRABEGRON
     Dosage: 50 MILLIGRAM, QD
     Dates: start: 20200408
  9. NEXIUM I.V. [Concomitant]
     Active Substance: ESOMEPRAZOLE SODIUM
     Dosage: 20 MILLIGRAM, QD
     Dates: start: 20200408
  10. EVENITY [Suspect]
     Active Substance: ROMOSOZUMAB-AQQG
     Dosage: 210 MILLIGRAM, QMO
     Route: 058
  11. MAINTATE [Concomitant]
     Active Substance: BISOPROLOL FUMARATE
     Dosage: 2.5 MILLIGRAM, QD
     Dates: start: 20200408
  12. ALINAMIN F [FURSULTIAMINE] [Concomitant]
     Active Substance: FURSULTIAMINE
     Dosage: 25 MILLIGRAM, BID
     Dates: start: 20201209
  13. JUVELA N [Concomitant]
     Active Substance: TOCOPHERYL NICOTINATE, D-.ALPHA.
     Dosage: 200 MILLIGRAM, BID
     Dates: start: 20200408
  14. DESYREL [Concomitant]
     Active Substance: TRAZODONE HYDROCHLORIDE
     Dosage: 50 MILLIGRAM, QD
     Dates: start: 20201209

REACTIONS (2)
  - Incorrect dose administered [Unknown]
  - Interstitial lung disease [Fatal]

NARRATIVE: CASE EVENT DATE: 20201028
